FAERS Safety Report 5619416-0 (Version None)
Quarter: 2008Q1

REPORT INFORMATION
  Report Type: 
  Country: None (occurrence: None)
  Receive Date: 20080114
  Receipt Date: 20070216
  Transmission Date: 20080703
  Serious: Yes (Other)
  Sender: FDA-Public Use
  Company Number: PHEH2007US00539

PATIENT
  Age: 7 Year
  Sex: Male

DRUGS (1)
  1. FOCALIN [Suspect]
     Indication: ATTENTION DEFICIT/HYPERACTIVITY DISORDER
     Dosage: 5 MG, QD, ORAL
     Route: 048
     Dates: start: 20061229, end: 20070102

REACTIONS (6)
  - AGITATION [None]
  - HALLUCINATIONS, MIXED [None]
  - HEADACHE [None]
  - INSOMNIA [None]
  - MUSCLE TWITCHING [None]
  - VOMITING [None]
